FAERS Safety Report 7300766 (Version 4)
Quarter: 2012Q4

REPORT INFORMATION
  Report Type: 
  Country: DE (occurrence: DE)
  Receive Date: 20100301
  Receipt Date: 20121127
  Transmission Date: 20130627
  Serious: Yes (Hospitalization, Other)
  Sender: FDA-Public Use
  Company Number: PHHO2010DE02916

PATIENT
  Age: 71 None
  Sex: Male
  Weight: 72.1 kg

DRUGS (6)
  1. AFINITOR [Suspect]
     Indication: NEUROENDOCRINE TUMOUR
     Dosage: 10 mg, UNK
     Route: 048
     Dates: start: 20091222, end: 20100218
  2. AFINITOR [Suspect]
     Dosage: No treatment
     Dates: start: 20100219, end: 20100222
  3. AFINITOR [Suspect]
     Dosage: 10 mg, UNK
     Route: 048
     Dates: start: 20100223
  4. TORASEMIDE [Suspect]
     Dosage: 15 mg, UNK
     Route: 048
     Dates: start: 20100115, end: 20100129
  5. TORASEMIDE [Suspect]
     Dosage: 10 mg, UNK
     Route: 048
     Dates: start: 20100130, end: 20100207
  6. TORASEMIDE [Suspect]
     Dosage: 5 mg, UNK
     Route: 048
     Dates: start: 20100208

REACTIONS (10)
  - Oedema [Recovering/Resolving]
  - Diarrhoea [Not Recovered/Not Resolved]
  - Dermatitis [Recovering/Resolving]
  - Infection [Unknown]
  - Renal failure acute [Recovered/Resolved]
  - Disorientation [Unknown]
  - Agitation [Unknown]
  - Blood urea increased [Recovering/Resolving]
  - Overdose [Unknown]
  - Acne [Unknown]
